FAERS Safety Report 11717425 (Version 3)
Quarter: 2016Q1

REPORT INFORMATION
  Report Type: Report from Study
  Country: US (occurrence: US)
  Receive Date: 20151110
  Receipt Date: 20160106
  Transmission Date: 20160525
  Serious: Yes (Death, Life-Threatening, Hospitalization)
  Sender: FDA-Public Use
  Company Number: US-ROCHE-1658690

PATIENT
  Age: 77 Year
  Sex: Female
  Weight: 94.43 kg

DRUGS (1)
  1. ESBRIET [Suspect]
     Active Substance: PIRFENIDONE
     Indication: IDIOPATHIC PULMONARY FIBROSIS
     Route: 048
     Dates: start: 20150623

REACTIONS (4)
  - Pneumonia [Unknown]
  - Pulmonary oedema [Unknown]
  - Cystitis [Unknown]
  - Death [Fatal]

NARRATIVE: CASE EVENT DATE: 20151126
